FAERS Safety Report 7774531-0 (Version None)
Quarter: 2011Q3

REPORT INFORMATION
  Report Type: 
  Country: None (occurrence: None)
  Receive Date: 20110923
  Receipt Date: 20110923
  Transmission Date: 20111222
  Serious: Yes (Other)
  Sender: FDA-Public Use
  Company Number: None

PATIENT
  Age: 75 Year
  Sex: Female
  Weight: 68 kg

DRUGS (1)
  1. LEVOFLOXACIN [Suspect]
     Dosage: 750MG
     Route: 041
     Dates: start: 20110914, end: 20110914

REACTIONS (3)
  - RASH MACULAR [None]
  - ERYTHEMA [None]
  - INFUSION RELATED REACTION [None]
